FAERS Safety Report 13406793 (Version 1)
Quarter: 2017Q2

REPORT INFORMATION
  Report Type: Spontaneous
  Country: FR (occurrence: FR)
  Receive Date: 20170405
  Receipt Date: 20170405
  Transmission Date: 20170830
  Serious: Yes (Hospitalization, Other)
  Sender: FDA-Public Use
  Company Number: FR-SHIRE-FR201707665

PATIENT
  Age: 47 Year
  Sex: Male

DRUGS (1)
  1. ELAPRASE [Suspect]
     Active Substance: IDURSULFASE
     Indication: PRODUCT USED FOR UNKNOWN INDICATION
     Dosage: 30 MG (5 VIALS), 1X/WEEK
     Route: 041
     Dates: start: 20170316

REACTIONS (2)
  - Staphylococcal infection [Unknown]
  - Chronic kidney disease [Unknown]
